FAERS Safety Report 6217642-3 (Version None)
Quarter: 2009Q2

REPORT INFORMATION
  Report Type: 
  Country: None (occurrence: None)
  Receive Date: 20090608
  Receipt Date: 20090513
  Transmission Date: 20091009
  Serious: No
  Sender: FDA-Public Use
  Company Number: A0784122A

PATIENT
  Age: 44 Year
  Sex: Male

DRUGS (2)
  1. WELLBUTRIN XL [Suspect]
     Indication: DEPRESSION
     Dosage: 300MG PER DAY
     Route: 048
  2. IBUPROFEN [Concomitant]

REACTIONS (2)
  - LIBIDO DECREASED [None]
  - SKIN EXFOLIATION [None]
